FAERS Safety Report 24464957 (Version 1)
Quarter: 2024Q4

REPORT INFORMATION
  Report Type: Report from Study
  Country: US (occurrence: US)
  Receive Date: 20241018
  Receipt Date: 20241018
  Transmission Date: 20250115
  Serious: No
  Sender: ROCHE
  Company Number: US-ROCHE-3517920

PATIENT
  Age: 47 Year
  Sex: Female

DRUGS (5)
  1. XOLAIR [Suspect]
     Active Substance: OMALIZUMAB
     Indication: Idiopathic urticaria
     Dosage: LAST INJECTION RECEIVED ON 26/FEB/2024.
     Route: 058
     Dates: start: 20240226
  2. XOLAIR [Suspect]
     Active Substance: OMALIZUMAB
  3. ALBUTEROL SULFATE [Concomitant]
     Active Substance: ALBUTEROL SULFATE
  4. DOXEPIN [Concomitant]
     Active Substance: DOXEPIN
  5. PEPCID [Concomitant]
     Active Substance: FAMOTIDINE

REACTIONS (4)
  - Rash [Unknown]
  - Cough [Unknown]
  - Urticaria [Unknown]
  - Bronchitis [Unknown]
